FAERS Safety Report 4286144-6 (Version None)
Quarter: 2004Q1

REPORT INFORMATION
  Report Type: 
  Country: None (occurrence: None)
  Receive Date: 20040204
  Receipt Date: 20040121
  Transmission Date: 20041129
  Serious: Yes (Life-Threatening, Hospitalization)
  Sender: FDA-Public Use
  Company Number: 2004004336

PATIENT
  Age: 83 Year
  Sex: Male

DRUGS (9)
  1. ZOLOFT [Suspect]
     Indication: DEPRESSION
     Dosage: 50 MG
     Dates: start: 20030821
  2. ACETYLSALICYLIC ACID SRT [Concomitant]
  3. CYCLOPHOSPHAMIDE (CYCLOPHOSPHAMIDE) [Concomitant]
  4. LASIX (FRUSEMIDE) (FRUSEMIDE) [Concomitant]
  5. AMLODIPINE BESYLATE [Concomitant]
  6. PREDNISOLONE [Concomitant]
  7. FEXOFENADINE HYDROCHLORIDE [Concomitant]
  8. SOTALOL HCL [Concomitant]
  9. MIRTAZAPINE [Concomitant]

REACTIONS (4)
  - DRUG INEFFECTIVE [None]
  - LOWER LIMB FRACTURE [None]
  - PELVIC FRACTURE [None]
  - SUICIDE ATTEMPT [None]
